FAERS Safety Report 6618841-9 (Version None)
Quarter: 2010Q1

REPORT INFORMATION
  Report Type: 
  Country: None (occurrence: None)
  Receive Date: 20100308
  Receipt Date: 20100222
  Transmission Date: 20100710
  Serious: Yes (Other)
  Sender: FDA-Public Use
  Company Number: US-MYLANLABS-2010S1002853

PATIENT
  Age: 39 Year
  Sex: Female

DRUGS (5)
  1. SERTRALINE HCL [Suspect]
     Route: 065
  2. FENTANYL [Interacting]
     Indication: SEDATION
     Dosage: 3 MINUTES APART
     Route: 065
  3. MIDAZOLAM HCL [Concomitant]
     Route: 065
  4. OCTREOTIDE ACETATE [Concomitant]
     Dosage: DRIP
  5. PANTOPRAZOLE [Concomitant]
     Dosage: DRIP

REACTIONS (2)
  - DRUG INTERACTION [None]
  - SEROTONIN SYNDROME [None]
